FAERS Safety Report 7731174-2 (Version None)
Quarter: 2011Q3

REPORT INFORMATION
  Report Type: 
  Country: None (occurrence: None)
  Receive Date: 20110906
  Receipt Date: 20110826
  Transmission Date: 20111222
  Serious: Yes (Disabling)
  Sender: FDA-Public Use
  Company Number: PHHY2011DK43194

PATIENT
  Sex: Male

DRUGS (5)
  1. METHOTREXATE [Suspect]
     Indication: ACUTE MYELOID LEUKAEMIA
     Dosage: 15 MG, UNK
     Route: 037
     Dates: start: 20090201, end: 20090201
  2. CYTOSAR-U [Suspect]
     Dosage: 50 MG, UNK
     Route: 037
     Dates: end: 20090518
  3. METHOTREXATE [Suspect]
     Dosage: 15 MG, UNK
     Route: 037
     Dates: end: 20090518
  4. HYDROCORTISONE [Suspect]
     Indication: ACUTE MYELOID LEUKAEMIA
     Dosage: 50 MG, UNK
     Route: 037
     Dates: end: 20090518
  5. CYTOSAR-U [Suspect]
     Indication: ACUTE MYELOID LEUKAEMIA
     Dosage: 50 MG, UNK
     Route: 037
     Dates: start: 20090201, end: 20090201

REACTIONS (10)
  - MUSCULAR WEAKNESS [None]
  - DYSAESTHESIA [None]
  - SENSORY DISTURBANCE [None]
  - URINARY INCONTINENCE [None]
  - MOTOR DYSFUNCTION [None]
  - VISUAL IMPAIRMENT [None]
  - SPINAL CORD OEDEMA [None]
  - FAECAL INCONTINENCE [None]
  - URINARY RETENTION [None]
  - GAIT DISTURBANCE [None]
